FAERS Safety Report 11690511 (Version 3)
Quarter: 2017Q3

REPORT INFORMATION
  Report Type: Spontaneous
  Country: US (occurrence: US)
  Receive Date: 20151102
  Receipt Date: 20170705
  Transmission Date: 20171127
  Serious: No
  Sender: FDA-Public Use
  Company Number: US-PFIZER INC-2015366209

PATIENT
  Age: 58 Year
  Sex: Female

DRUGS (3)
  1. NORPACE CR [Concomitant]
     Active Substance: DISOPYRAMIDE PHOSPHATE
     Dosage: 100 MG, UNK
     Dates: end: 201506
  2. DISOPYRAMIDE PHOSPHATE. [Suspect]
     Active Substance: DISOPYRAMIDE PHOSPHATE
     Indication: ARRHYTHMIA
     Dosage: 100 MG, 3X/DAY
  3. DISOPYRAMIDE PHOSPHATE. [Suspect]
     Active Substance: DISOPYRAMIDE PHOSPHATE
     Dosage: 100 MG, 3X/DAY
     Dates: start: 201506

REACTIONS (7)
  - Abdominal discomfort [Not Recovered/Not Resolved]
  - Fluid retention [Unknown]
  - Drug intolerance [Unknown]
  - Malaise [Not Recovered/Not Resolved]
  - Blood pressure fluctuation [Not Recovered/Not Resolved]
  - Drug ineffective [Unknown]
  - Dysuria [Unknown]
